FAERS Safety Report 19814994 (Version 1)
Quarter: 2021Q3

REPORT INFORMATION
  Report Type: Spontaneous
  Country: US (occurrence: US)
  Receive Date: 20210907
  Receipt Date: 20210907
  Transmission Date: 20211014
  Serious: Yes (Hospitalization)
  Sender: FDA-Public Use
  Company Number: None

PATIENT
  Sex: Female

DRUGS (1)
  1. VONVENDI [Suspect]
     Active Substance: VON WILLEBRAND FACTOR (RECOMBINANT)
     Indication: VON WILLEBRAND^S DISEASE
     Dosage: ?          OTHER STRENGTH:5800UNITS;OTHER DOSE:5800UNITS;?
     Route: 042
     Dates: start: 20210503, end: 20210507

REACTIONS (2)
  - Incorrect dose administered [None]
  - Procedural haemorrhage [None]
